FAERS Safety Report 6426257-3 (Version None)
Quarter: 2009Q4

REPORT INFORMATION
  Report Type: 
  Country: None (occurrence: None)
  Receive Date: 20091104
  Receipt Date: 20091026
  Transmission Date: 20100525
  Serious: Yes (Other)
  Sender: FDA-Public Use
  Company Number: FR-ROCHE-661067

PATIENT
  Sex: Female
  Weight: 67 kg

DRUGS (9)
  1. PEGASYS [Interacting]
     Indication: HEPATITIS C
     Route: 058
     Dates: start: 20090605
  2. COPEGUS [Suspect]
     Indication: HEPATITIS C
     Route: 048
     Dates: start: 20090701
  3. NEORECORMON [Interacting]
     Route: 065
  4. NEORECORMON [Interacting]
     Route: 065
  5. KAYEXALATE [Concomitant]
     Indication: DRUG USE FOR UNKNOWN INDICATION
  6. AMLOR [Concomitant]
     Route: 048
     Dates: start: 20090909
  7. HYPERIUM [Concomitant]
     Route: 048
     Dates: start: 20090821
  8. TEMERIT [Concomitant]
     Route: 048
     Dates: start: 20090720
  9. CALCIDIA [Concomitant]
     Route: 048
     Dates: start: 20090907

REACTIONS (3)
  - ANAEMIA [None]
  - DRUG INTERACTION [None]
  - NEUTROPENIA [None]
